FAERS Safety Report 7888110-8 (Version None)
Quarter: 2011Q4

REPORT INFORMATION
  Report Type: 
  Country: None (occurrence: None)
  Receive Date: 20111101
  Receipt Date: 20111021
  Transmission Date: 20120403
  Serious: Yes (Other)
  Sender: FDA-Public Use
  Company Number: AUR-APL-2011-05552

PATIENT
  Age: 79 Year
  Sex: Female

DRUGS (6)
  1. POTASSIUM CHLORIDE [Concomitant]
  2. THYROID THERAPY (THYROID THERAPY) [Concomitant]
  3. GABAPENTIN [Suspect]
     Indication: FIBROMYALGIA
     Dosage: 2 DOSAGE FORMS (1 DOSAGE FORMS,2 IN 1 D),ORAL
     Route: 048
  4. WARFARIN SODIUM [Concomitant]
  5. PREMARIN [Concomitant]
  6. LASIX [Concomitant]

REACTIONS (6)
  - HYPERHIDROSIS [None]
  - DIZZINESS [None]
  - COORDINATION ABNORMAL [None]
  - NAUSEA [None]
  - FATIGUE [None]
  - VISUAL ACUITY REDUCED [None]
